FAERS Safety Report 7754190-3 (Version None)
Quarter: 2011Q3

REPORT INFORMATION
  Report Type: 
  Country: None (occurrence: None)
  Receive Date: 20110915
  Receipt Date: 20110909
  Transmission Date: 20111222
  Serious: Yes (Hospitalization)
  Sender: FDA-Public Use
  Company Number: US-ASTRAZENECA-2011SE08531

PATIENT
  Age: 53 Year
  Sex: Female
  Weight: 48.1 kg

DRUGS (11)
  1. CITALOPRAM HPR [Concomitant]
     Indication: BIPOLAR DISORDER
     Route: 048
  2. TRAMADOL HCL [Concomitant]
     Indication: PAIN
     Route: 048
     Dates: start: 20100101
  3. XANAX [Concomitant]
     Indication: BIPOLAR DISORDER
     Route: 048
  4. SEROQUEL XR [Suspect]
     Indication: BIPOLAR DISORDER
     Route: 048
     Dates: start: 20060101
  5. CELEXA [Concomitant]
     Indication: DEPRESSION
     Dates: start: 20090101
  6. ROPINIROLE [Concomitant]
     Indication: MUSCLE SPASMS
     Route: 048
  7. RANZIDINE [Concomitant]
     Indication: HERNIA
     Route: 048
     Dates: start: 20090101
  8. IBUPROFEN [Concomitant]
     Route: 048
  9. PLAVIX [Concomitant]
     Indication: CEREBROVASCULAR ACCIDENT
     Route: 048
     Dates: start: 20100101
  10. IBUPROFEN [Concomitant]
     Indication: PAIN
     Route: 048
  11. REQUIP [Concomitant]
     Indication: MUSCLE SPASMS
     Route: 048
     Dates: start: 20100101

REACTIONS (7)
  - FEELING ABNORMAL [None]
  - TRANSIENT ISCHAEMIC ATTACK [None]
  - MIDDLE INSOMNIA [None]
  - DRUG DOSE OMISSION [None]
  - INSOMNIA [None]
  - MUSCLE TWITCHING [None]
  - WRONG TECHNIQUE IN DRUG USAGE PROCESS [None]
